FAERS Safety Report 9439183 (Version 1)
Quarter: 2013Q3

REPORT INFORMATION
  Report Type: Spontaneous
  Country: BB (occurrence: BB)
  Receive Date: 20130803
  Receipt Date: 20130803
  Transmission Date: 20140515
  Serious: Yes (Death)
  Sender: FDA-Public Use
  Company Number: BB-B.I. PHARMACEUTICALS,INC./RIDGEFIELD-2013-CN-01348CN

PATIENT
  Sex: Female

DRUGS (1)
  1. PRADAX [Suspect]

REACTIONS (1)
  - Death [Fatal]
